FAERS Safety Report 10484340 (Version 2)
Quarter: 2015Q4

REPORT INFORMATION
  Report Type: Report from Study
  Country: AE (occurrence: AE)
  Receive Date: 20140930
  Receipt Date: 20151105
  Transmission Date: 20160304
  Serious: Yes (Other)
  Sender: FDA-Public Use
  Company Number: AE-ALEXION PHARMACEUTICALS INC.-A201403728

PATIENT
  Age: 2 Year
  Sex: Female

DRUGS (2)
  1. SOLIRIS [Suspect]
     Active Substance: ECULIZUMAB
     Dosage: 300 MG, Q2W
     Route: 042
     Dates: start: 20140610
  2. SOLIRIS [Suspect]
     Active Substance: ECULIZUMAB
     Indication: HAEMOLYTIC URAEMIC SYNDROME
     Dosage: 300 MG, TWO DOSES
     Route: 042
     Dates: start: 20140523, end: 20140527

REACTIONS (3)
  - Proteinuria [Unknown]
  - Neutropenia [Not Recovered/Not Resolved]
  - Thrombotic microangiopathy [Unknown]

NARRATIVE: CASE EVENT DATE: 20140923
